FAERS Safety Report 7371269-9 (Version None)
Quarter: 2011Q1

REPORT INFORMATION
  Report Type: 
  Country: None (occurrence: None)
  Receive Date: 20110324
  Receipt Date: 20110311
  Transmission Date: 20110831
  Serious: No
  Sender: FDA-Public Use
  Company Number: JP-JNJFOC-20110307518

PATIENT

DRUGS (2)
  1. DICLOFENAC SODIUM [Concomitant]
     Route: 065
  2. FENTANYL [Suspect]
     Indication: PAIN
     Route: 062

REACTIONS (1)
  - DRUG PRESCRIBING ERROR [None]
